FAERS Safety Report 7865051-3 (Version None)
Quarter: 2011Q4

REPORT INFORMATION
  Report Type: 
  Country: None (occurrence: None)
  Receive Date: 20111028
  Receipt Date: 20101006
  Transmission Date: 20120403
  Serious: No
  Sender: FDA-Public Use
  Company Number: US-GLAXOSMITHKLINE-A0885236A

PATIENT
  Age: 67 Year
  Sex: Male

DRUGS (6)
  1. ADVAIR DISKUS 100/50 [Suspect]
     Indication: CHRONIC OBSTRUCTIVE PULMONARY DISEASE
     Dosage: 1PUFF TWICE PER DAY
     Route: 055
     Dates: start: 20010401
  2. XANAX [Concomitant]
  3. COUMADIN [Concomitant]
  4. DILTIAZEM HCL [Concomitant]
  5. LIPITOR [Concomitant]
  6. ALBUTEROL SULFATE AND IPRATROPIUM BROMIDE [Concomitant]

REACTIONS (2)
  - PRODUCT QUALITY ISSUE [None]
  - DYSPNOEA [None]
